FAERS Safety Report 13389463 (Version 5)
Quarter: 2017Q3

REPORT INFORMATION
  Report Type: Report from Study
  Country: CA (occurrence: CA)
  Receive Date: 20170330
  Receipt Date: 20170707
  Transmission Date: 20171127
  Serious: Yes (Other)
  Sender: FDA-Public Use
  Company Number: CA-JNJFOC-20170324079

PATIENT
  Age: 56 Year
  Sex: Female
  Weight: 50 kg

DRUGS (8)
  1. REMICADE [Suspect]
     Active Substance: INFLIXIMAB
     Indication: CROHN^S DISEASE
     Route: 042
     Dates: start: 20120415
  2. REMICADE [Suspect]
     Active Substance: INFLIXIMAB
     Indication: CROHN^S DISEASE
     Route: 042
     Dates: start: 20170614
  3. REMICADE [Suspect]
     Active Substance: INFLIXIMAB
     Indication: CROHN^S DISEASE
     Dosage: 300 MG
     Route: 042
     Dates: start: 20120716
  4. REMICADE [Suspect]
     Active Substance: INFLIXIMAB
     Indication: CROHN^S DISEASE
     Route: 042
     Dates: start: 20170322
  5. REMICADE [Suspect]
     Active Substance: INFLIXIMAB
     Indication: CROHN^S DISEASE
     Route: 042
     Dates: start: 20170419
  6. REMICADE [Suspect]
     Active Substance: INFLIXIMAB
     Indication: CROHN^S DISEASE
     Route: 042
     Dates: start: 20120616
  7. REMICADE [Suspect]
     Active Substance: INFLIXIMAB
     Indication: CROHN^S DISEASE
     Route: 042
     Dates: start: 20170517
  8. METHOTREXATE. [Concomitant]
     Active Substance: METHOTREXATE
     Indication: CROHN^S DISEASE
     Route: 048

REACTIONS (7)
  - Off label use [Unknown]
  - General physical health deterioration [Not Recovered/Not Resolved]
  - Pain [Unknown]
  - Intestinal stenosis [Not Recovered/Not Resolved]
  - Fatigue [Not Recovered/Not Resolved]
  - Crohn^s disease [Not Recovered/Not Resolved]
  - Incorrect dose administered [Unknown]

NARRATIVE: CASE EVENT DATE: 20120616
